FAERS Safety Report 25843199 (Version 3)
Quarter: 2025Q4

REPORT INFORMATION
  Report Type: Spontaneous
  Country: US (occurrence: US)
  Receive Date: 20250924
  Receipt Date: 20251006
  Transmission Date: 20260119
  Serious: Yes (Hospitalization)
  Sender: SANOFI AVENTIS
  Company Number: US-SA-2025SA283818

PATIENT
  Age: 60 Year
  Sex: Female

DRUGS (3)
  1. DUPIXENT [Suspect]
     Active Substance: DUPILUMAB
     Indication: Asthma
     Dosage: 300 MG, QOW
     Route: 058
     Dates: start: 202202
  2. PROLIA [Concomitant]
     Active Substance: DENOSUMAB
     Dosage: UNK
  3. ORENCIA [Concomitant]
     Active Substance: ABATACEPT
     Dosage: UNK

REACTIONS (4)
  - Wound infection [Recovering/Resolving]
  - Skin discolouration [Unknown]
  - Injection site pain [Unknown]
  - Asthma [Unknown]

NARRATIVE: CASE EVENT DATE: 20250101
